FAERS Safety Report 6429920-3 (Version None)
Quarter: 2009Q4

REPORT INFORMATION
  Report Type: 
  Country: None (occurrence: None)
  Receive Date: 20091106
  Receipt Date: 20091102
  Transmission Date: 20100525
  Serious: Yes (Life-Threatening, Hospitalization, Disabling)
  Sender: FDA-Public Use
  Company Number: SE-JNJFOC-20091001449

PATIENT
  Age: 43 Year
  Sex: Male

DRUGS (4)
  1. CONCERTA [Suspect]
     Indication: ATTENTION DEFICIT/HYPERACTIVITY DISORDER
     Route: 048
     Dates: start: 20080601, end: 20090101
  2. NORMORIX [Concomitant]
     Indication: HYPERTENSION
     Route: 065
  3. IMOVANE [Concomitant]
     Route: 065
  4. ERGENYL [Concomitant]
     Indication: DRUG THERAPY

REACTIONS (4)
  - CAROTID ARTERY DISEASE [None]
  - HYPERTENSION [None]
  - ISCHAEMIC STROKE [None]
  - LIPIDS ABNORMAL [None]
